FAERS Safety Report 8689842 (Version 2)
Quarter: 2014Q1

REPORT INFORMATION
  Report Type: Spontaneous
  Country: US (occurrence: US)
  Receive Date: 20120727
  Receipt Date: 20140110
  Transmission Date: 20141002
  Serious: No
  Sender: FDA-Public Use
  Company Number: US-ASTRAZENECA-2012SE03685

PATIENT
  Age: 31 Year
  Sex: Female
  Weight: 62.6 kg

DRUGS (5)
  1. SEROQUEL [Suspect]
     Indication: BIPOLAR DISORDER
     Route: 048
  2. SEROQUEL [Suspect]
     Indication: BIPOLAR DISORDER
     Route: 048
  3. SEROQUEL [Suspect]
     Indication: BIPOLAR DISORDER
     Route: 048
  4. LAMICTAL [Concomitant]
  5. CYMBALTA [Concomitant]
     Indication: DEPRESSION

REACTIONS (14)
  - Abdominal pain upper [Unknown]
  - Chills [Unknown]
  - Rash [Unknown]
  - Nausea [Unknown]
  - Headache [Unknown]
  - Weight decreased [Unknown]
  - Metabolic disorder [Unknown]
  - Hangover [Unknown]
  - Therapy change [Unknown]
  - Muscle spasms [Unknown]
  - Somnolence [Unknown]
  - Weight increased [Unknown]
  - Fatigue [Recovered/Resolved]
  - Drug dose omission [Unknown]
